FAERS Safety Report 10342919 (Version 1)
Quarter: 2014Q3

REPORT INFORMATION
  Report Type: Spontaneous
  Country: US (occurrence: US)
  Receive Date: 20140725
  Receipt Date: 20140725
  Transmission Date: 20150326
  Serious: Yes (Hospitalization)
  Sender: FDA-Public Use
  Company Number: US-PFIZER INC-2014204657

PATIENT
  Sex: Female

DRUGS (1)
  1. INLYTA [Suspect]
     Active Substance: AXITINIB
     Indication: NEOPLASM MALIGNANT
     Dosage: 3 MG, 2X/DAY

REACTIONS (7)
  - Urinary tract infection [Unknown]
  - Hallucination [Unknown]
  - Mediastinal disorder [Unknown]
  - Neoplasm malignant [Unknown]
  - Disease progression [Unknown]
  - Confusional state [Unknown]
  - Mediastinitis [Unknown]
